FAERS Safety Report 8539919-9 (Version None)
Quarter: 2012Q2

REPORT INFORMATION
  Report Type: 
  Country: None (occurrence: None)
  Receive Date: 20120416
  Receipt Date: 20080428
  Transmission Date: 20120825
  Serious: No
  Sender: FDA-Public Use
  Company Number: PHEH2007US13672

PATIENT
  Sex: Female
  Weight: 362 kg

DRUGS (10)
  1. DIOVAN [Suspect]
     Indication: HYPERTENSION
     Dosage: 320 MG, UNK
     Dates: start: 20050101, end: 20070504
  2. ALBUTEROL [Concomitant]
  3. ALDOMET [Suspect]
     Dosage: 500 MG, TID, ORAL
     Route: 048
     Dates: start: 20070504
  4. DICYCLOMINE [Concomitant]
  5. ATENOLOL [Suspect]
     Indication: HYPERTENSION
     Dosage: 50 MG, QD, ORAL
     Route: 048
     Dates: end: 20070504
  6. FAMOTIDINE [Concomitant]
  7. PRENATAL VITAMINS (ASCORBIC ACID, BIOTIN, MINERALS NOS, NICOTINIC ACID [Concomitant]
  8. ZOLOFT [Concomitant]
  9. NASACORT [Concomitant]
  10. MOTRIN [Concomitant]

REACTIONS (5)
  - GENITAL HAEMORRHAGE [None]
  - HYPERTENSION [None]
  - DELIVERY [None]
  - ABDOMINAL PAIN LOWER [None]
  - MATERNAL EXPOSURE DURING PREGNANCY [None]
